FAERS Safety Report 14145306 (Version 1)
Quarter: 2017Q4

REPORT INFORMATION
  Report Type: Spontaneous
  Country: US (occurrence: US)
  Receive Date: 20171031
  Receipt Date: 20171031
  Transmission Date: 20180321
  Serious: Yes (Other)
  Sender: FDA-Public Use
  Company Number: US-LEXICON PHARMACEUTICALS, INC-17-1606-01082

PATIENT
  Age: 60 Year
  Sex: Male

DRUGS (18)
  1. LOPERAMIDE [Concomitant]
     Active Substance: LOPERAMIDE
  2. K-PHOS [Concomitant]
     Active Substance: POTASSIUM PHOSPHATE, MONOBASIC
  3. TYLENOL [Concomitant]
     Active Substance: ACETAMINOPHEN
  4. ZOFRAN [Concomitant]
     Active Substance: ONDANSETRON HYDROCHLORIDE
  5. METAMUCIL [Concomitant]
     Active Substance: PLANTAGO SEED
  6. OMEGA3 [Concomitant]
  7. SANDOSTATIN [Concomitant]
     Active Substance: OCTREOTIDE ACETATE
  8. CREON [Concomitant]
     Active Substance: PANCRELIPASE AMYLASE\PANCRELIPASE LIPASE\PANCRELIPASE PROTEASE
  9. ROXICODONE [Concomitant]
     Active Substance: OXYCODONE HYDROCHLORIDE
  10. TELOTRISTAT ETHYL [Suspect]
     Active Substance: TELOTRISTAT ETHYL
     Indication: CARCINOID TUMOUR
     Route: 048
     Dates: start: 20170721
  11. SIMETHICONE (DIMETHICONE) [Concomitant]
     Active Substance: DIMETHICONE
  12. BELLADONNA-OPIUM [Concomitant]
  13. DIPHENOXYLATE-ATROPINE [Concomitant]
  14. MELATONIN [Concomitant]
     Active Substance: MELATONIN
  15. FIBER [Concomitant]
     Active Substance: PSYLLIUM HUSK
  16. MULTIVITAMIN [Concomitant]
     Active Substance: VITAMINS
  17. QUESTRAN [Concomitant]
     Active Substance: CHOLESTYRAMINE
  18. MEGACE ORAL SUS [Concomitant]

REACTIONS (1)
  - Neoplasm progression [Not Recovered/Not Resolved]

NARRATIVE: CASE EVENT DATE: 201708
